FAERS Safety Report 13534168 (Version 1)
Quarter: 2017Q2

REPORT INFORMATION
  Report Type: Spontaneous
  Country: US (occurrence: US)
  Receive Date: 20170510
  Receipt Date: 20170510
  Transmission Date: 20170830
  Serious: No
  Sender: FDA-Public Use
  Company Number: None

PATIENT
  Age: 38 Year
  Sex: Female

DRUGS (1)
  1. COPAXONE [Suspect]
     Active Substance: GLATIRAMER ACETATE

REACTIONS (5)
  - Dysarthria [None]
  - Drug ineffective [None]
  - Multiple sclerosis relapse [None]
  - Hemiparesis [None]
  - Gait disturbance [None]

NARRATIVE: CASE EVENT DATE: 20170510
